FAERS Safety Report 11734480 (Version 1)
Quarter: 2015Q4

REPORT INFORMATION
  Report Type: Report from Study
  Country: US (occurrence: US)
  Receive Date: 20151113
  Receipt Date: 20151113
  Transmission Date: 20160304
  Serious: Yes (Other)
  Sender: FDA-Public Use
  Company Number: US-VIIV HEALTHCARE LIMITED-US2015GSK160089

PATIENT
  Age: 28 Year
  Sex: Female

DRUGS (3)
  1. LAMIVUDINE AND ZIDOVUDINE [Suspect]
     Active Substance: LAMIVUDINE\ZIDOVUDINE
     Indication: HIV INFECTION
     Dosage: 2 TAB/CAPS DAILY
     Route: 048
     Dates: start: 20140920
  2. KALETRA [Suspect]
     Active Substance: LOPINAVIR\RITONAVIR
     Indication: HIV INFECTION
     Dosage: 4 TAB/CAPS DAILY
     Route: 048
     Dates: start: 20140920, end: 20141222
  3. KALETRA [Suspect]
     Active Substance: LOPINAVIR\RITONAVIR
     Dosage: 6 TAB/CAPS DAILY
     Route: 048
     Dates: start: 20141222

REACTIONS (3)
  - Hypertension [Unknown]
  - Stillbirth [Unknown]
  - Exposure during pregnancy [Unknown]

NARRATIVE: CASE EVENT DATE: 20150312
